FAERS Safety Report 12546322 (Version 1)
Quarter: 2016Q3

REPORT INFORMATION
  Report Type: Spontaneous
  Country: SE (occurrence: SE)
  Receive Date: 20160711
  Receipt Date: 20160711
  Transmission Date: 20161109
  Serious: Yes (Other)
  Sender: FDA-Public Use
  Company Number: SE-GUERBET LLC-1054864

PATIENT
  Age: 72 Year
  Sex: Female

DRUGS (1)
  1. OPTIRAY [Suspect]
     Active Substance: IOVERSOL
     Indication: COMPUTERISED TOMOGRAM
     Route: 042
     Dates: start: 20160524, end: 20160524

REACTIONS (2)
  - Pruritus [Unknown]
  - Rash generalised [Unknown]

NARRATIVE: CASE EVENT DATE: 20160524
